FAERS Safety Report 19225826 (Version 1)
Quarter: 2021Q2

REPORT INFORMATION
  Report Type: Spontaneous
  Country: US (occurrence: US)
  Receive Date: 20210506
  Receipt Date: 20210506
  Transmission Date: 20210717
  Serious: No
  Sender: FDA-Public Use
  Company Number: US-PFIZER INC-2021458947

PATIENT
  Age: 69 Year
  Sex: Female

DRUGS (3)
  1. TRIAMCINOLONE [Suspect]
     Active Substance: TRIAMCINOLONE
     Indication: RASH
     Dosage: UNK
  2. HYDROXYZINE PAMOATE. [Suspect]
     Active Substance: HYDROXYZINE PAMOATE
     Indication: RASH
     Dosage: UNK
  3. CERAVE ITCH RELIEF MOISTURIZING [Suspect]
     Active Substance: PRAMOXINE HYDROCHLORIDE
     Indication: RASH
     Dosage: UNK

REACTIONS (1)
  - Drug ineffective [Unknown]
